FAERS Safety Report 10523805 (Version 5)
Quarter: 2016Q1

REPORT INFORMATION
  Report Type: Report from Study
  Country: US (occurrence: US)
  Receive Date: 20141017
  Receipt Date: 20160317
  Transmission Date: 20160525
  Serious: Yes (Hospitalization, Other)
  Sender: FDA-Public Use
  Company Number: US-AMGEN INC.-USASL2014079729

PATIENT
  Age: 6 Year
  Sex: Male

DRUGS (6)
  1. ENBREL [Suspect]
     Active Substance: ETANERCEPT
     Indication: JUVENILE IDIOPATHIC ARTHRITIS
     Dosage: 0.7 ML, QWK
     Route: 065
     Dates: start: 20140301
  2. ENBREL [Suspect]
     Active Substance: ETANERCEPT
     Dosage: 1 ML, UNK
     Route: 065
     Dates: start: 201511
  3. ENBREL [Suspect]
     Active Substance: ETANERCEPT
     Dosage: 0.8 ML, QWK
     Route: 065
     Dates: start: 20150819
  4. ENBREL [Suspect]
     Active Substance: ETANERCEPT
     Dosage: 25 MG, QWK
     Route: 065
     Dates: start: 2016
  5. METHOTREXATE [Concomitant]
     Active Substance: METHOTREXATE
     Dosage: 1 ML, UNK
  6. METHOTREXATE [Concomitant]
     Active Substance: METHOTREXATE
     Dosage: UNK

REACTIONS (13)
  - Dehydration [Recovered/Resolved]
  - Gastroenteritis viral [Unknown]
  - Oropharyngeal pain [Recovered/Resolved]
  - Pain in extremity [Unknown]
  - Musculoskeletal stiffness [Not Recovered/Not Resolved]
  - Arthralgia [Unknown]
  - Pneumonia [Unknown]
  - Condition aggravated [Unknown]
  - Peripheral swelling [Unknown]
  - Joint swelling [Unknown]
  - Oral herpes [Unknown]
  - Liver function test increased [Unknown]
  - Fungal infection [Unknown]

NARRATIVE: CASE EVENT DATE: 20140928
